FAERS Safety Report 25644050 (Version 1)
Quarter: 2025Q3

REPORT INFORMATION
  Report Type: Spontaneous
  Country: US (occurrence: None)
  Receive Date: 20250803
  Receipt Date: 20250803
  Transmission Date: 20251020
  Serious: Yes (Other)
  Sender: FDA-CTU
  Company Number: None

PATIENT
  Age: 35 Year
  Sex: Male
  Weight: 74.25 kg

DRUGS (1)
  1. SERTRALINE HYDROCHLORIDE [Suspect]
     Active Substance: SERTRALINE HYDROCHLORIDE
     Indication: Premature ejaculation
     Route: 048
     Dates: start: 20250508, end: 20250509

REACTIONS (4)
  - Sexual dysfunction [None]
  - Genital hypoaesthesia [None]
  - Orgasmic sensation decreased [None]
  - Erectile dysfunction [None]

NARRATIVE: CASE EVENT DATE: 20250508
